FAERS Safety Report 7200465-6 (Version None)
Quarter: 2010Q4

REPORT INFORMATION
  Report Type: 
  Country: None (occurrence: None)
  Receive Date: 20101228
  Receipt Date: 20101227
  Transmission Date: 20110411
  Serious: Yes (Death)
  Sender: FDA-Public Use
  Company Number: JP-BAYER-201010031BYL

PATIENT
  Age: 69 Year
  Sex: Male

DRUGS (27)
  1. NEXAVAR [Suspect]
     Indication: HEPATIC NEOPLASM MALIGNANT
     Dosage: 400 MG, BID
     Route: 048
     Dates: start: 20091207, end: 20091224
  2. NEXAVAR [Suspect]
  3. PROMAC [POLAPREZINC] [Concomitant]
     Indication: GASTRIC ULCER
     Dosage: 30 MINUTES AFTER BREAKFAST AND DINNER
     Route: 048
  4. PROMAC [POLAPREZINC] [Concomitant]
  5. URSO 250 [Concomitant]
     Indication: HEPATIC FUNCTION ABNORMAL
     Dosage: 30 MINUTES AFTER EVERY MEAL
     Route: 048
  6. URSO 250 [Concomitant]
  7. JUVELA [Concomitant]
     Indication: VITAMIN SUPPLEMENTATION
     Dosage: 30 MINUTES AFTER EVERY MEAL
     Route: 048
  8. JUVELA [Concomitant]
  9. CINAL [ASCORBIC ACID,CALCIUM PANTOTHENATE] [Concomitant]
     Indication: VITAMIN SUPPLEMENTATION
     Dosage: 30 MINUTES AFTER EVERY MEAL
     Route: 048
  10. CINAL [ASCORBIC ACID,CALCIUM PANTOTHENATE] [Concomitant]
  11. LASIX [Concomitant]
     Indication: OEDEMA
     Dosage: 30 MINUTES AFTER MEAL
     Route: 048
  12. LASIX [Concomitant]
  13. ALDACTONE [Concomitant]
     Indication: OEDEMA
     Route: 048
  14. ALDACTONE [Concomitant]
  15. TAKEPRON [Concomitant]
     Indication: GASTRIC ULCER
     Dosage: 30 MINUTES AFTER MEAL
     Route: 048
  16. TAKEPRON [Concomitant]
  17. FASTIC [Concomitant]
     Indication: DIABETES MELLITUS
     Dosage: EVERY BEFORE MEAL
     Route: 048
  18. FASTIC [Concomitant]
  19. MARZULENE S [Concomitant]
     Indication: GASTRIC ULCER
     Dosage: 30 MINUTES AFTER EVERY MEAL
     Route: 048
  20. MARZULENE S [Concomitant]
  21. METHYCOBAL [Concomitant]
     Indication: VITAMIN SUPPLEMENTATION
     Dosage: AFTER EVERY MEAL
     Route: 048
  22. METHYCOBAL [Concomitant]
  23. ADETPHOS [Concomitant]
     Indication: GASTROINTESTINAL DISORDER THERAPY
     Dosage: AFTER EVERY MEAL
     Route: 048
  24. ADETPHOS [Concomitant]
  25. CARNACULIN [KALLIDINOGENASE] [Concomitant]
     Indication: CARDIOVASCULAR DISORDER
     Dosage: AFTER EVERY MEAL
     Route: 048
  26. CARNACULIN [KALLIDINOGENASE] [Concomitant]
  27. LIVACT [ISOLEUCINE,LEUCINE,VALINE] [Concomitant]
     Route: 048

REACTIONS (2)
  - HEPATIC FAILURE [None]
  - HYPERAMMONAEMIA [None]
